FAERS Safety Report 8587366-6 (Version None)
Quarter: 2012Q3

REPORT INFORMATION
  Report Type: 
  Country: None (occurrence: None)
  Receive Date: 20120810
  Receipt Date: 20111230
  Transmission Date: 20120928
  Serious: No
  Sender: FDA-Public Use
  Company Number: US-ASTRAZENECA-2011SE76177

PATIENT
  Age: 65 Year
  Sex: Female

DRUGS (1)
  1. ARIMIDEX [Suspect]
     Route: 048

REACTIONS (6)
  - ADVERSE DRUG REACTION [None]
  - AFFECT LABILITY [None]
  - ARTHRALGIA [None]
  - ILL-DEFINED DISORDER [None]
  - ABASIA [None]
  - DRUG HYPERSENSITIVITY [None]
